FAERS Safety Report 14704264 (Version 1)
Quarter: 2018Q2

REPORT INFORMATION
  Report Type: Spontaneous
  Country: US (occurrence: US)
  Receive Date: 20180402
  Receipt Date: 20180402
  Transmission Date: 20180711
  Serious: Yes (Other)
  Sender: FDA-Public Use
  Company Number: US-ALLERGAN-1727094US

PATIENT
  Sex: Male

DRUGS (1)
  1. ASACOL HD [Suspect]
     Active Substance: MESALAMINE
     Indication: INFLAMMATORY BOWEL DISEASE
     Dosage: 1600 MG, TID
     Route: 048
     Dates: start: 2016

REACTIONS (5)
  - Eczema [Recovered/Resolved]
  - Inflammation [Recovered/Resolved]
  - Skin exfoliation [Recovered/Resolved]
  - Rectal haemorrhage [Recovered/Resolved]
  - Drug ineffective [Unknown]
